FAERS Safety Report 17730896 (Version 2)
Quarter: 2020Q2

REPORT INFORMATION
  Report Type: Spontaneous
  Country: CN (occurrence: CN)
  Receive Date: 20200430
  Receipt Date: 20200504
  Transmission Date: 20200714
  Serious: Yes (Death, Other)
  Sender: FDA-Public Use
  Company Number: CN-ROCHE-2587981

PATIENT
  Age: 76 Year
  Sex: Male

DRUGS (22)
  1. HERCEPTIN [Suspect]
     Active Substance: TRASTUZUMAB
     Indication: ADENOCARCINOMA GASTRIC
     Dosage: 2 CYCLES
     Route: 065
  2. FLUOROURACIL. [Concomitant]
     Active Substance: FLUOROURACIL
     Dosage: FOLFIRI REGIMEN 12 TIMES
     Route: 065
     Dates: start: 20130806, end: 20140321
  3. CALCIUM FOLINATE [Concomitant]
     Active Substance: LEUCOVORIN CALCIUM
     Dosage: FOLFIRI REGIMEN 12 TIMES
     Route: 065
     Dates: start: 20130806, end: 20140321
  4. FLUOROURACIL. [Concomitant]
     Active Substance: FLUOROURACIL
     Indication: ADENOCARCINOMA GASTRIC
     Dosage: FOLFOX6 REGIMEN 12 TIMES
     Route: 065
     Dates: start: 20110928, end: 20120425
  5. OXALIPLATIN. [Concomitant]
     Active Substance: OXALIPLATIN
     Indication: ADENOCARCINOMA GASTRIC
     Dosage: FOLFOX6 REGIMEN 12 TIMES
     Route: 065
     Dates: start: 20110928, end: 20120425
  6. IRINOTECAN [Concomitant]
     Active Substance: IRINOTECAN
     Indication: ADENOCARCINOMA GASTRIC
     Dosage: FOLFIRI REGIMEN 12 TIMES
     Route: 065
     Dates: start: 20130806, end: 20140321
  7. DOCETAXEL. [Concomitant]
     Active Substance: DOCETAXEL
     Dosage: DP REGIMEN
     Route: 065
     Dates: start: 20161123
  8. CISPLATIN. [Concomitant]
     Active Substance: CISPLATIN
     Dosage: PF REGIMEN
     Route: 065
     Dates: start: 20160918
  9. FLUOROURACIL. [Concomitant]
     Active Substance: FLUOROURACIL
     Dosage: PF REGIMEN
     Route: 065
     Dates: start: 20150828
  10. DOCETAXEL. [Concomitant]
     Active Substance: DOCETAXEL
     Dosage: DP REGIMEN
     Route: 065
     Dates: start: 20161102
  11. XELODA [Suspect]
     Active Substance: CAPECITABINE
     Dosage: DAY1-14, 4 CYCLES
     Route: 048
  12. CALCIUM FOLINATE [Concomitant]
     Active Substance: LEUCOVORIN CALCIUM
     Indication: ADENOCARCINOMA GASTRIC
     Dosage: FOLFOX6 REGIMEN 12 TIMES
     Route: 065
     Dates: start: 20110928, end: 20120425
  13. CISPLATIN. [Concomitant]
     Active Substance: CISPLATIN
     Dosage: DP REGIMEN
     Route: 065
     Dates: start: 20161102
  14. HERCEPTIN [Suspect]
     Active Substance: TRASTUZUMAB
     Route: 065
  15. FLUOROURACIL. [Concomitant]
     Active Substance: FLUOROURACIL
     Dosage: FOLFIRI REGIMEN 2 TIMES
     Route: 065
     Dates: start: 20150101
  16. DOCETAXEL. [Concomitant]
     Active Substance: DOCETAXEL
     Indication: ADENOCARCINOMA GASTRIC
     Dosage: DAY1,8, 4 CYCLES
     Route: 065
     Dates: start: 20130102
  17. CISPLATIN. [Concomitant]
     Active Substance: CISPLATIN
     Indication: ADENOCARCINOMA GASTRIC
     Dosage: PF REGIMEN
     Route: 065
     Dates: start: 20160828
  18. CISPLATIN. [Concomitant]
     Active Substance: CISPLATIN
     Dosage: DP REGIMEN
     Route: 065
     Dates: start: 20161123
  19. CALCIUM FOLINATE [Concomitant]
     Active Substance: LEUCOVORIN CALCIUM
     Dosage: FOLFIRI REGIMEN 2 TIMES
     Route: 065
     Dates: start: 20150101
  20. IRINOTECAN [Concomitant]
     Active Substance: IRINOTECAN
     Dosage: FOLFIRI REGIMEN 2 TIMES
     Route: 065
     Dates: start: 20150101
  21. XELODA [Suspect]
     Active Substance: CAPECITABINE
     Indication: ADENOCARCINOMA GASTRIC
     Route: 048
  22. FLUOROURACIL. [Concomitant]
     Active Substance: FLUOROURACIL
     Dosage: PF REGIMEN
     Route: 065
     Dates: start: 20150918

REACTIONS (3)
  - Haematemesis [Unknown]
  - Hypertension [Unknown]
  - Bone marrow failure [Unknown]

NARRATIVE: CASE EVENT DATE: 2012
